FAERS Safety Report 16028920 (Version 1)
Quarter: 2019Q2

REPORT INFORMATION
  Report Type: Spontaneous
  Country: US (occurrence: US)
  Receive Date: 20190301
  Receipt Date: 20190301
  Transmission Date: 20190711
  Serious: Yes (Disabling)
  Sender: FDA-Public Use
  Company Number: None

PATIENT
  Age: 58 Year
  Sex: Female
  Weight: 63 kg

DRUGS (1)
  1. LOSARTAN POTASSIUM. [Suspect]
     Active Substance: LOSARTAN POTASSIUM
     Indication: HYPERTENSION
     Dosage: ?          QUANTITY:90 TABLET(S);?
     Route: 048

REACTIONS (9)
  - Product contamination [None]
  - Recalled product administered [None]
  - Endolymphatic hydrops [None]
  - Post procedural complication [None]
  - Meningioma [None]
  - Carcinogenicity [None]
  - Thyroid cancer [None]
  - Deafness [None]
  - Vocal cord paralysis [None]
